FAERS Safety Report 4634381-0 (Version None)
Quarter: 2005Q2

REPORT INFORMATION
  Report Type: 
  Country: None (occurrence: None)
  Receive Date: 20050411
  Receipt Date: 20040922
  Transmission Date: 20051028
  Serious: Yes (Death, Other)
  Sender: FDA-Public Use
  Company Number: 2004063984

PATIENT
  Age: 75 Year
  Sex: Female

DRUGS (2)
  1. ZELDOX (CAPSULES) (ZIPRASIDONE) [Suspect]
     Indication: SCHIZOPHRENIA
     Dosage: 80 MG (40 MG, 2 IN 1 D), ORAL
     Route: 048
     Dates: start: 20040801, end: 20040801
  2. MAGNECYL-KODEIN (ACETYLSALICYLIC ACID, CODEINE PHOSPHATE, MAGNESIUM OX [Concomitant]

REACTIONS (2)
  - PERFORATED ULCER [None]
  - PERITONITIS [None]
